FAERS Safety Report 9916668 (Version 1)
Quarter: 2014Q1

REPORT INFORMATION
  Report Type: Spontaneous
  Country: US (occurrence: US)
  Receive Date: 20140221
  Receipt Date: 20140221
  Transmission Date: 20141002
  Serious: No
  Sender: FDA-Public Use
  Company Number: US-MYLANLABS-2013S1026653

PATIENT
  Age: 86 Year
  Sex: Female
  Weight: 56.25 kg

DRUGS (1)
  1. BUDESONIDE CAPSULES [Suspect]
     Indication: COLITIS
     Route: 048
     Dates: start: 20131025

REACTIONS (2)
  - Drug ineffective [Not Recovered/Not Resolved]
  - Diarrhoea [Not Recovered/Not Resolved]
